FAERS Safety Report 5490401-5 (Version None)
Quarter: 2007Q4

REPORT INFORMATION
  Report Type: 
  Country: None (occurrence: None)
  Receive Date: 20071019
  Receipt Date: 20071015
  Transmission Date: 20080405
  Serious: Yes (Other)
  Sender: FDA-Public Use
  Company Number: PHBS2007BR05729

PATIENT
  Age: 30 Year
  Sex: Female
  Weight: 79 kg

DRUGS (4)
  1. TOFRANIL [Suspect]
     Indication: PANIC DISORDER
     Dosage: 25 MG, 5QD
     Route: 048
     Dates: start: 19940101
  2. TOFRANIL [Suspect]
     Dosage: 25 MG, QD
     Route: 048
     Dates: end: 20070215
  3. LORAX [Concomitant]
     Indication: NERVOUSNESS
     Dosage: 1 MG, BID
     Route: 048
     Dates: start: 19940801
  4. ATENOLOL W/CHLORTALIDONE [Concomitant]
     Indication: HYPERTENSION
     Dosage: 100/25 MG/DAY
     Route: 048

REACTIONS (16)
  - ABDOMINAL PAIN [None]
  - AGITATION [None]
  - ALOPECIA [None]
  - ARRHYTHMIA [None]
  - CONSTIPATION [None]
  - DRY MOUTH [None]
  - EAR OPERATION [None]
  - EUPHORIC MOOD [None]
  - FEELING HOT [None]
  - HYPERHIDROSIS [None]
  - HYPERTENSION [None]
  - INCREASED APPETITE [None]
  - PAIN IN EXTREMITY [None]
  - SOMNOLENCE [None]
  - TINNITUS [None]
  - WEIGHT INCREASED [None]
